FAERS Safety Report 10306827 (Version 2)
Quarter: 2015Q1

REPORT INFORMATION
  Report Type: Spontaneous
  Country: US (occurrence: US)
  Receive Date: 20140715
  Receipt Date: 20150129
  Transmission Date: 20150720
  Serious: Yes (Death, Other)
  Sender: FDA-Public Use
  Company Number: US-GILEAD-2014-0108734

PATIENT
  Age: 74 Year
  Sex: Male

DRUGS (3)
  1. LETAIRIS [Suspect]
     Active Substance: AMBRISENTAN
     Indication: PULMONARY HYPERTENSION
     Dosage: 10 MG, QD
     Route: 065
     Dates: start: 20120803, end: 2014
  2. LETAIRIS [Suspect]
     Active Substance: AMBRISENTAN
     Indication: EMBOLISM
  3. LETAIRIS [Suspect]
     Active Substance: AMBRISENTAN
     Indication: RESTRICTIVE PULMONARY DISEASE

REACTIONS (1)
  - Cardiomyopathy [Fatal]

NARRATIVE: CASE EVENT DATE: 2014
